FAERS Safety Report 11770354 (Version 2)
Quarter: 2015Q4

REPORT INFORMATION
  Report Type: Report from Study
  Country: US (occurrence: US)
  Receive Date: 20151123
  Receipt Date: 20151223
  Transmission Date: 20160304
  Serious: Yes (Hospitalization, Other)
  Sender: FDA-Public Use
  Company Number: US-ACTELION-A-NJ2015-127495

PATIENT
  Age: 66 Year
  Sex: Female

DRUGS (3)
  1. ADCIRCA [Concomitant]
     Active Substance: TADALAFIL
  2. REMODULIN [Concomitant]
     Active Substance: TREPROSTINIL
  3. MACITENTAN [Suspect]
     Active Substance: MACITENTAN
     Indication: PULMONARY ARTERIAL HYPERTENSION
     Dosage: 10 MG, QD
     Route: 048
     Dates: start: 20150618

REACTIONS (11)
  - Pain in extremity [Unknown]
  - Back pain [Unknown]
  - Renal failure [Unknown]
  - Nausea [Unknown]
  - Dialysis [Unknown]
  - Headache [Unknown]
  - Localised infection [Unknown]
  - Pain [Unknown]
  - Pulmonary arterial hypertension [Unknown]
  - Vomiting [Unknown]
  - Faecal incontinence [Unknown]
